FAERS Safety Report 6831944-9 (Version None)
Quarter: 2010Q3

REPORT INFORMATION
  Report Type: 
  Country: None (occurrence: None)
  Receive Date: 20100712
  Receipt Date: 20100706
  Transmission Date: 20110219
  Serious: Yes (Hospitalization, Other)
  Sender: FDA-Public Use
  Company Number: NL-ROCHE-647776

PATIENT
  Sex: Male
  Weight: 74 kg

DRUGS (24)
  1. VALGANCICLOVIR [Suspect]
     Indication: PRODUCT USED FOR UNKNOWN INDICATION
     Route: 065
     Dates: start: 20081029, end: 20090106
  2. VALGANCICLOVIR [Suspect]
     Route: 065
     Dates: start: 20090203, end: 20090609
  3. MYCOPHENOLATE MOFETIL [Suspect]
     Route: 048
     Dates: start: 20081028, end: 20090312
  4. CP-690550 [Suspect]
     Route: 048
     Dates: start: 20081029, end: 20090119
  5. PREDNISOLONE [Suspect]
     Route: 048
     Dates: start: 20081031, end: 20081101
  6. PREDNISOLONE [Suspect]
     Route: 048
     Dates: start: 20081102, end: 20081110
  7. PREDNISOLONE [Suspect]
     Route: 048
     Dates: start: 20081111, end: 20081124
  8. PREDNISOLONE [Suspect]
     Route: 048
     Dates: start: 20081125, end: 20081201
  9. PREDNISOLONE [Suspect]
     Route: 048
     Dates: start: 20081202, end: 20090105
  10. PREDNISOLONE [Suspect]
     Route: 048
     Dates: start: 20090106, end: 20090115
  11. PREDNISOLONE [Suspect]
     Route: 048
     Dates: start: 20090116, end: 20090119
  12. PREDNISOLONE [Suspect]
     Route: 048
     Dates: start: 20090120, end: 20090127
  13. PREDNISOLONE [Suspect]
     Route: 048
     Dates: start: 20090221, end: 20090309
  14. PREDNISOLONE [Suspect]
     Route: 048
     Dates: start: 20090310
  15. TACROLIMUS [Suspect]
     Route: 048
     Dates: start: 20090119
  16. METHYLPREDNISOLONE [Concomitant]
     Route: 042
     Dates: start: 20081028
  17. METHYLPREDNISOLONE [Concomitant]
     Route: 042
     Dates: start: 20081029
  18. METHYLPREDNISOLONE [Concomitant]
     Route: 042
     Dates: start: 20081030
  19. METHYLPREDNISOLONE [Concomitant]
     Route: 042
     Dates: start: 20090131, end: 20090202
  20. METHYLPREDNISOLONE [Concomitant]
     Dosage: SPECIFIED AS ANTI-REJECTION THERAPY 2 TIMES
     Route: 042
     Dates: start: 20090218, end: 20090220
  21. RANITIDINE [Concomitant]
     Dates: start: 20081125, end: 20090113
  22. NIFEDIPINE [Concomitant]
     Dates: start: 20081104
  23. METOPROLOL [Concomitant]
     Dates: start: 20081118, end: 20090106
  24. ENALAPRIL MALEATE [Concomitant]
     Route: 048
     Dates: start: 20090103

REACTIONS (3)
  - CYTOMEGALOVIRUS INFECTION [None]
  - MYOPATHY [None]
  - TRANSPLANT REJECTION [None]
